FAERS Safety Report 15535509 (Version 1)
Quarter: 2018Q4

REPORT INFORMATION
  Report Type: Spontaneous
  Country: US (occurrence: US)
  Receive Date: 20181020
  Receipt Date: 20181020
  Transmission Date: 20190205
  Serious: No
  Sender: FDA-Public Use
  Company Number: None

PATIENT
  Age: 15 Year
  Sex: Female
  Weight: 92.25 kg

DRUGS (4)
  1. IBUPROFEN. [Concomitant]
     Active Substance: IBUPROFEN
  2. BUPROPION. [Concomitant]
     Active Substance: BUPROPION
  3. ADVIL [Concomitant]
     Active Substance: IBUPROFEN
  4. DULOXETINE HCL [Suspect]
     Active Substance: DULOXETINE HYDROCHLORIDE
     Indication: ANXIETY
     Dosage: ?          QUANTITY:1 CAPSULE(S);?
     Route: 048
     Dates: start: 20170101, end: 20181020

REACTIONS (6)
  - Withdrawal syndrome [None]
  - Headache [None]
  - Hypophagia [None]
  - Nausea [None]
  - Vomiting [None]
  - Tremor [None]

NARRATIVE: CASE EVENT DATE: 20181020
